FAERS Safety Report 9024288 (Version 2)
Quarter: 2013Q1

REPORT INFORMATION
  Report Type: Report from Study
  Country: JP (occurrence: JP)
  Receive Date: 20130115
  Receipt Date: 20130115
  Transmission Date: 20140127
  Serious: Yes (Hospitalization)
  Sender: FDA-Public Use
  Company Number: PHHO2012JP013818

PATIENT
  Age: 63 None
  Sex: 0
  Weight: 83 kg

DRUGS (9)
  1. ALISKIREN [Suspect]
     Indication: CARDIAC FAILURE
     Dosage: CODE NOT BROKEN
     Route: 048
     Dates: start: 20100911
  2. ENALAPRIL [Suspect]
     Indication: CARDIAC FAILURE
  3. LUPRAC [Suspect]
     Indication: CARDIAC FAILURE CHRONIC
     Dosage: 8 MG/DAY
     Route: 048
     Dates: end: 20120707
  4. LUPRAC [Suspect]
     Dosage: 4 MG/DAY
     Route: 048
     Dates: start: 20120708
  5. ARTIST [Suspect]
     Indication: CARDIAC FAILURE CHRONIC
     Dosage: 10 MG/DAY
     Route: 048
     Dates: end: 20120707
  6. ARTIST [Suspect]
     Dosage: 7.5 MG/DAY
     Route: 048
     Dates: start: 20120708, end: 20120901
  7. ARTIST [Suspect]
     Dosage: 5 MG/DAY
     Route: 048
     Dates: start: 20120902
  8. ALOSITOL [Concomitant]
     Indication: HYPERURICAEMIA
     Dosage: 200 MG, UNK
     Route: 048
     Dates: start: 20101016
  9. WARFARIN [Concomitant]
     Indication: THROMBOSIS PROPHYLAXIS
     Dosage: 2.5 MG, UNK
     Route: 048
     Dates: start: 20100718

REACTIONS (1)
  - Cardiac failure [Not Recovered/Not Resolved]
